FAERS Safety Report 15644476 (Version 1)
Quarter: 2018Q4

REPORT INFORMATION
  Report Type: Spontaneous
  Country: FR (occurrence: FR)
  Receive Date: 20181121
  Receipt Date: 20181121
  Transmission Date: 20190205
  Serious: Yes (Other)
  Sender: FDA-Public Use
  Company Number: FR-PROVELL PHARMACEUTICALS-2059159

PATIENT
  Age: 66 Year
  Sex: Female

DRUGS (1)
  1. EUTHYROX [Suspect]
     Active Substance: LEVOTHYROXINE SODIUM
     Indication: HYPOTHYROIDISM
     Dates: start: 2017

REACTIONS (14)
  - Fall [Recovered/Resolved]
  - Asphyxia [Recovered/Resolved]
  - Suicide attempt [Recovered/Resolved]
  - Personality change [Recovered/Resolved]
  - Serum ferritin increased [None]
  - Rib fracture [Recovered/Resolved]
  - Weight decreased [Recovered/Resolved]
  - Neck injury [Recovered/Resolved]
  - Road traffic accident [Recovered/Resolved]
  - Dizziness [Recovered/Resolved]
  - Abnormal behaviour [Recovered/Resolved]
  - Blood thyroid stimulating hormone decreased [Recovered/Resolved]
  - Irritability [Recovered/Resolved]
  - Alopecia [Recovered/Resolved]

NARRATIVE: CASE EVENT DATE: 201706
